FAERS Safety Report 25765619 (Version 2)
Quarter: 2025Q3

REPORT INFORMATION
  Report Type: Spontaneous
  Country: US (occurrence: US)
  Receive Date: 20250905
  Receipt Date: 20250910
  Transmission Date: 20251020
  Serious: Yes (Life-Threatening, Hospitalization, Other)
  Sender: DR REDDYS
  Company Number: None

PATIENT
  Age: 72 Year
  Sex: Female

DRUGS (6)
  1. GEMCITABINE [Suspect]
     Active Substance: GEMCITABINE
     Indication: Pancreatic carcinoma metastatic
     Dosage: ON DAYS 1, 8, AND 15 OF EACH 28-DAY CYCLE
  2. GEMCITABINE [Suspect]
     Active Substance: GEMCITABINE
     Dosage: DOSE REDUCTIONS
  3. PACLITAXEL [Concomitant]
     Active Substance: PACLITAXEL
     Indication: Pancreatic carcinoma metastatic
     Dosage: ON DAYS 1, 8, AND 15 OF EACH 28-DAY CYCLE.
  4. PACLITAXEL [Concomitant]
     Active Substance: PACLITAXEL
     Dosage: DOSE REDUCTIONS
  5. APIXABAN [Concomitant]
     Active Substance: APIXABAN
     Indication: Pulmonary mass
     Dosage: ON DAYS 1, 8, AND 15 OF EACH 28-DAY CYCLE.
  6. APIXABAN [Concomitant]
     Active Substance: APIXABAN
     Indication: Pulmonary embolism
     Dosage: DOSE REDUCTIONS

REACTIONS (2)
  - Arteriosclerosis [Recovered/Resolved]
  - Thrombotic microangiopathy [Recovered/Resolved]
